FAERS Safety Report 10009427 (Version 1)
Quarter: 2014Q1

REPORT INFORMATION
  Report Type: Spontaneous
  Country: US (occurrence: US)
  Receive Date: 20140312
  Receipt Date: 20140312
  Transmission Date: 20141002
  Serious: No
  Sender: FDA-Public Use
  Company Number: US-INCYTE CORPORATION-2012IN001568

PATIENT
  Sex: Female

DRUGS (3)
  1. JAKAFI [Suspect]
     Indication: MYELOFIBROSIS
     Dosage: 15 MG, BID
     Route: 048
  2. AMLODIPINE [Concomitant]
     Dosage: 2.5 MG, QD
  3. PANTOPRAZOLE [Concomitant]
     Dosage: 40 MG, QD

REACTIONS (4)
  - Dyspnoea [Unknown]
  - Fatigue [Unknown]
  - Peripheral coldness [Unknown]
  - Anaemia [Unknown]
